FAERS Safety Report 8185421-6 (Version None)
Quarter: 2012Q1

REPORT INFORMATION
  Report Type: 
  Country: None (occurrence: None)
  Receive Date: 20120305
  Receipt Date: 20120302
  Transmission Date: 20120608
  Serious: Yes (Death, Other)
  Sender: FDA-Public Use
  Company Number: PHHY2012JP015641

PATIENT
  Age: 85 Year
  Sex: Male

DRUGS (1)
  1. CEFEPIME HYDROCHLORIDE [Suspect]
     Indication: PNEUMONIA
     Dosage: UNK
     Route: 042
     Dates: start: 20120220, end: 20120221

REACTIONS (4)
  - RENAL FAILURE ACUTE [None]
  - GENERALISED OEDEMA [None]
  - URINE OUTPUT DECREASED [None]
  - PYREXIA [None]
